FAERS Safety Report 4493980-X (Version None)
Quarter: 2004Q4

REPORT INFORMATION
  Report Type: 
  Country: None (occurrence: None)
  Receive Date: 20041103
  Receipt Date: 20041103
  Transmission Date: 20050328
  Serious: Yes (Death)
  Sender: FDA-Public Use
  Company Number: None

PATIENT
  Age: 90 Year
  Sex: Male
  Weight: 66.7 kg

DRUGS (2)
  1. GAMMAGARD S/D [Suspect]
     Dosage: 25GM IV DAILY X 5
     Route: 042
     Dates: start: 20041022, end: 20041026
  2. GAMMAGARD S/D [Suspect]

REACTIONS (11)
  - BLOOD PRESSURE INCREASED [None]
  - BRADYCARDIA [None]
  - DYSPNOEA [None]
  - GAIT DISTURBANCE [None]
  - GENERAL PHYSICAL HEALTH DETERIORATION [None]
  - HEART RATE IRREGULAR [None]
  - HYPOAESTHESIA [None]
  - PARAESTHESIA [None]
  - RALES [None]
  - RESPIRATORY RATE INCREASED [None]
  - RHONCHI [None]
